FAERS Safety Report 21740146 (Version 1)
Quarter: 2022Q4

REPORT INFORMATION
  Report Type: Spontaneous
  Country: US (occurrence: US)
  Receive Date: 20221216
  Receipt Date: 20221216
  Transmission Date: 20230113
  Serious: No
  Sender: FDA-Public Use
  Company Number: US-REGENERON PHARMACEUTICALS, INC.-2022-120787

PATIENT
  Sex: Female

DRUGS (3)
  1. EYLEA [Suspect]
     Active Substance: AFLIBERCEPT
     Indication: Age-related macular degeneration
     Dosage: FORMULATION: UNKNOWN, RIGHT EYE
     Route: 031
  2. EYLEA [Suspect]
     Active Substance: AFLIBERCEPT
     Dosage: FORMULATION: UNKNOWN, RIGHT EYE
     Route: 031
     Dates: start: 20211112, end: 20211112
  3. EYLEA [Suspect]
     Active Substance: AFLIBERCEPT
     Dosage: FORMULATION: UNKNOWN, RIGHT EYE
     Route: 031

REACTIONS (1)
  - Eye inflammation [Recovered/Resolved]

NARRATIVE: CASE EVENT DATE: 20211115
